FAERS Safety Report 4483460-X (Version None)
Quarter: 2004Q4

REPORT INFORMATION
  Report Type: 
  Country: None (occurrence: None)
  Receive Date: 20041020
  Receipt Date: 20041014
  Transmission Date: 20050328
  Serious: Yes (Hospitalization)
  Sender: FDA-Public Use
  Company Number: 2004-10-0767

PATIENT

DRUGS (2)
  1. PEG-INTRON [Suspect]
     Dosage: SUBCUTANEOUS
     Route: 058
     Dates: end: 20040301
  2. REBETOL [Suspect]
     Dosage: ORAL
     Route: 048
     Dates: end: 20040301

REACTIONS (3)
  - CHEST WALL PAIN [None]
  - CHOLELITHIASIS [None]
  - FEELING ABNORMAL [None]
